FAERS Safety Report 7307615-1 (Version None)
Quarter: 2011Q1

REPORT INFORMATION
  Report Type: 
  Country: None (occurrence: None)
  Receive Date: 20110211
  Receipt Date: 20110201
  Transmission Date: 20110831
  Serious: Yes (Death, Hospitalization)
  Sender: FDA-Public Use
  Company Number: 2009SP028574

PATIENT
  Age: 47 Year
  Sex: Female
  Weight: 117.9352 kg

DRUGS (2)
  1. NUVARING [Suspect]
     Indication: MENORRHAGIA
     Dates: start: 20070412, end: 20081014
  2. NUVARING [Suspect]
     Indication: MENSTRUAL DISORDER
     Dates: start: 20070412, end: 20081014

REACTIONS (15)
  - THROMBOSIS [None]
  - HEART RATE IRREGULAR [None]
  - ACIDOSIS [None]
  - BRADYCARDIA [None]
  - PULMONARY EMBOLISM [None]
  - EYE MOVEMENT DISORDER [None]
  - URINARY INCONTINENCE [None]
  - ATRIOVENTRICULAR BLOCK COMPLETE [None]
  - DEEP VEIN THROMBOSIS [None]
  - DISSEMINATED INTRAVASCULAR COAGULATION [None]
  - HYPOTENSION [None]
  - RESPIRATORY FAILURE [None]
  - FAECAL INCONTINENCE [None]
  - UROSEPSIS [None]
  - CARDIAC ARREST [None]
